FAERS Safety Report 7227356-9 (Version None)
Quarter: 2011Q1

REPORT INFORMATION
  Report Type: 
  Country: None (occurrence: None)
  Receive Date: 20110114
  Receipt Date: 20100806
  Transmission Date: 20110831
  Serious: Yes (Hospitalization)
  Sender: FDA-Public Use
  Company Number: CA-NOVOPROD-301789

PATIENT
  Sex: Male
  Weight: 89.9 kg

DRUGS (2)
  1. LIRAGLUTIDE FLEXPEN [Suspect]
     Indication: OBESITY
     Dosage: 3 MG, QD
     Route: 058
     Dates: start: 20090202
  2. ZANTAC                             /00550801/ [Concomitant]
     Indication: DYSPEPSIA
     Dosage: 150 MG, PRN
     Route: 048
     Dates: start: 20050101

REACTIONS (1)
  - EPIGLOTTITIS [None]
